FAERS Safety Report 15830101 (Version 1)
Quarter: 2019Q1

REPORT INFORMATION
  Report Type: Spontaneous
  Country: FI (occurrence: FI)
  Receive Date: 20190115
  Receipt Date: 20190115
  Transmission Date: 20190417
  Serious: Yes (Disabling)
  Sender: FDA-Public Use
  Company Number: FI-SHIRE-FI201850372

PATIENT
  Age: 12 Year
  Sex: Male

DRUGS (2)
  1. ELVANSE [Suspect]
     Active Substance: LISDEXAMFETAMINE DIMESYLATE
     Indication: ATTENTION DEFICIT/HYPERACTIVITY DISORDER
     Dosage: 30 MG, 1X/DAY:QD
     Route: 048
     Dates: start: 20180503, end: 201806
  2. ABSENOR [Concomitant]
     Indication: EPILEPSY
     Dosage: 900,MG,DAILY
     Route: 048
     Dates: start: 2010

REACTIONS (2)
  - Urinary incontinence [Recovered/Resolved]
  - Anal incontinence [Recovered/Resolved]

NARRATIVE: CASE EVENT DATE: 201806
